FAERS Safety Report 5632393-1 (Version None)
Quarter: 2008Q1

REPORT INFORMATION
  Report Type: 
  Country: None (occurrence: None)
  Receive Date: 20080220
  Receipt Date: 20070206
  Transmission Date: 20080703
  Serious: No
  Sender: FDA-Public Use
  Company Number: US-ASTRAZENECA-2006UW28129

PATIENT
  Age: 64 Year
  Sex: Female
  Weight: 65.9 kg

DRUGS (9)
  1. PLENDIL [Suspect]
     Indication: HYPERTENSION
     Route: 048
  2. SPIRONOLACTONE [Suspect]
     Indication: ADRENAL DISORDER
     Dosage: CUT 25 MG TABLET IN HALF
     Route: 048
     Dates: start: 20040101
  3. PRINIVIL [Suspect]
     Indication: HYPERTENSION
     Route: 048
  4. METFORMIN HYDROCHLORIDE [Concomitant]
  5. LEVOTHYROXINE SODIUM [Concomitant]
  6. LIOTHYRONINE SODIUM [Concomitant]
  7. INSULIN ZINC SUSPENSION [Concomitant]
  8. GLIBENCLAMIDE [Concomitant]
  9. GLUCOPHAGE XR [Concomitant]

REACTIONS (2)
  - HYPOKALAEMIA [None]
  - HYPONATRAEMIA [None]
